FAERS Safety Report 9201480 (Version 3)
Quarter: 2013Q3

REPORT INFORMATION
  Report Type: Report from Study
  Country: BR (occurrence: BR)
  Receive Date: 20130401
  Receipt Date: 20130910
  Transmission Date: 20140515
  Serious: Yes (Hospitalization)
  Sender: FDA-Public Use
  Company Number: BR-ABBOTT-13P-020-1067116-00

PATIENT
  Age: 63 Year
  Sex: Female
  Weight: 60 kg

DRUGS (10)
  1. HUMIRA [Suspect]
     Indication: RHEUMATOID ARTHRITIS
     Route: 058
     Dates: start: 20130308
  2. GLIBENCLAMIDE [Concomitant]
     Indication: DIABETES MELLITUS
     Dosage: 2 TABLETS DAILY
     Route: 048
     Dates: start: 2010
  3. METFORMIN [Concomitant]
     Indication: PRODUCT USED FOR UNKNOWN INDICATION
     Route: 048
     Dates: start: 201201
  4. ARAVA [Concomitant]
     Indication: ARTHRITIS
     Route: 048
     Dates: start: 2010
  5. METHOTREXATE [Concomitant]
     Indication: ARTHRITIS
     Dosage: ON THURSDAYS
     Route: 048
     Dates: start: 2010
  6. FOLIC ACID [Concomitant]
     Indication: ARTHRITIS
     Dosage: ON FRIDAYS
     Route: 048
     Dates: start: 2010
  7. LOSARTAN [Concomitant]
     Indication: HYPERTENSION
     Dosage: 100 MG DAILY
     Route: 048
     Dates: start: 2010
  8. SIMVASTATIN [Concomitant]
     Indication: PRODUCT USED FOR UNKNOWN INDICATION
     Route: 048
     Dates: start: 2010
  9. AMLODIPINE [Concomitant]
     Indication: PRODUCT USED FOR UNKNOWN INDICATION
     Route: 048
     Dates: start: 2010
  10. OMEPRAZOLE [Concomitant]
     Indication: GASTRIC DISORDER
     Route: 048
     Dates: start: 2010

REACTIONS (8)
  - Dizziness [Recovered/Resolved]
  - Muscle spasms [Recovered/Resolved]
  - Blood glucose decreased [Recovered/Resolved]
  - Headache [Recovered/Resolved]
  - Vomiting [Recovered/Resolved]
  - Abdominal pain [Unknown]
  - Arthralgia [Recovered/Resolved]
  - Pain [Unknown]
